FAERS Safety Report 15371398 (Version 1)
Quarter: 2018Q3

REPORT INFORMATION
  Report Type: Spontaneous
  Country: SK (occurrence: SK)
  Receive Date: 20180911
  Receipt Date: 20180911
  Transmission Date: 20181010
  Serious: Yes (Hospitalization, Other)
  Sender: FDA-Public Use
  Company Number: PHHY2018SK090442

PATIENT
  Age: 14 Year
  Sex: Female

DRUGS (3)
  1. PARACETAMOL [Suspect]
     Active Substance: ACETAMINOPHEN
     Indication: EAR PAIN
     Dosage: 500 MG, UNK
     Route: 065
  2. IBUPROFEN. [Suspect]
     Active Substance: IBUPROFEN
     Indication: EAR PAIN
     Dosage: 400 MG, 4 HOURS INTERVAL
     Route: 065
  3. IBUPROFEN. [Suspect]
     Active Substance: IBUPROFEN
     Indication: PYREXIA

REACTIONS (6)
  - Overdose [Unknown]
  - Blood urea [Unknown]
  - Liver disorder [Recovering/Resolving]
  - Drug ineffective [Unknown]
  - Inflammation [Unknown]
  - Renal failure [Recovering/Resolving]
